FAERS Safety Report 12631864 (Version 2)
Quarter: 2016Q3

REPORT INFORMATION
  Report Type: Spontaneous
  Country: US (occurrence: US)
  Receive Date: 20160808
  Receipt Date: 20160808
  Transmission Date: 20161109
  Serious: No
  Sender: FDA-Public Use
  Company Number: US-BEH-2016061273

PATIENT
  Sex: Female
  Weight: 27 kg

DRUGS (8)
  1. CARBAMAZEPINE. [Concomitant]
     Active Substance: CARBAMAZEPINE
  2. PHENYTOIN. [Concomitant]
     Active Substance: PHENYTOIN
  3. LIDOCAINE. [Concomitant]
     Active Substance: LIDOCAINE
  4. ACETAMINOPHEN. [Concomitant]
     Active Substance: ACETAMINOPHEN
  5. EPIPEN JR [Concomitant]
     Active Substance: EPINEPHRINE
  6. DIAZEPAM. [Concomitant]
     Active Substance: DIAZEPAM
  7. HIZENTRA [Suspect]
     Active Substance: HUMAN IMMUNOGLOBULIN G
     Indication: SELECTIVE IGG SUBCLASS DEFICIENCY
     Route: 058
  8. DIPHENHYDRAMINE. [Concomitant]
     Active Substance: DIPHENHYDRAMINE

REACTIONS (2)
  - Abdominal distension [Unknown]
  - Headache [Unknown]
